FAERS Safety Report 8456030-6 (Version None)
Quarter: 2012Q2

REPORT INFORMATION
  Report Type: 
  Country: None (occurrence: None)
  Receive Date: 20120621
  Receipt Date: 20120614
  Transmission Date: 20120825
  Serious: No
  Sender: FDA-Public Use
  Company Number: PHHY2012JP042908

PATIENT
  Age: 64 Year
  Sex: Male

DRUGS (2)
  1. FEBURIC [Suspect]
     Dosage: 20 MG, QD
     Route: 048
     Dates: start: 20111216, end: 20120517
  2. LAMISIL [Suspect]
     Indication: TINEA INFECTION
     Dosage: 125 MG, QD
     Route: 048
     Dates: start: 20110930

REACTIONS (5)
  - MEDICATION ERROR [None]
  - LIVER FUNCTION TEST ABNORMAL [None]
  - ASPARTATE AMINOTRANSFERASE INCREASED [None]
  - ALANINE AMINOTRANSFERASE INCREASED [None]
  - GAMMA-GLUTAMYLTRANSFERASE INCREASED [None]
